FAERS Safety Report 10232252 (Version 1)
Quarter: 2014Q2

REPORT INFORMATION
  Report Type: Spontaneous
  Country: US (occurrence: US)
  Receive Date: 20140612
  Receipt Date: 20140612
  Transmission Date: 20141212
  Serious: No
  Sender: FDA-Public Use
  Company Number: US-BIOGENIDEC-2014BI052653

PATIENT
  Age: 75 Year
  Sex: Female

DRUGS (12)
  1. TECFIDERA [Suspect]
     Indication: MULTIPLE SCLEROSIS
     Route: 048
     Dates: start: 20140410
  2. AMPYRA [Concomitant]
  3. BACLOFEN [Concomitant]
  4. FOSAMAX [Concomitant]
  5. HYDROCHLOROTHIAZIDE [Concomitant]
  6. MELOXICAM [Concomitant]
  7. SIMVASTATIN [Concomitant]
  8. BAYER ASPIRIN [Concomitant]
  9. CALCIUM + D [Concomitant]
  10. CENTRUM [Concomitant]
  11. VITAMIN C PLUS [Concomitant]
  12. VITAMIN E [Concomitant]

REACTIONS (1)
  - Disease progression [Unknown]
